FAERS Safety Report 25446938 (Version 3)
Quarter: 2025Q3

REPORT INFORMATION
  Report Type: Spontaneous
  Country: US (occurrence: None)
  Receive Date: 20250617
  Receipt Date: 20250811
  Transmission Date: 20251020
  Serious: No
  Sender: INCYTE
  Company Number: US-INCYTE CORPORATION-2025IN006294

PATIENT

DRUGS (1)
  1. OPZELURA [Suspect]
     Active Substance: RUXOLITINIB PHOSPHATE
     Route: 065

REACTIONS (5)
  - Condition aggravated [Unknown]
  - Pruritus [Unknown]
  - Product physical consistency issue [Unknown]
  - Product distribution issue [Unknown]
  - Product temperature excursion issue [Unknown]
